FAERS Safety Report 5449813-8 (Version None)
Quarter: 2007Q3

REPORT INFORMATION
  Report Type: 
  Country: None (occurrence: None)
  Receive Date: 20070912
  Receipt Date: 20070903
  Transmission Date: 20080115
  Serious: Yes (Hospitalization)
  Sender: FDA-Public Use
  Company Number: GB-JNJFOC-20070702405

PATIENT
  Sex: Female
  Weight: 54 kg

DRUGS (2)
  1. NORGESTIMATE AND ETHINYL ESTRADIOL [Suspect]
     Indication: CONTRACEPTION
     Route: 048
  2. FLUOXETINE [Concomitant]
     Indication: DEPRESSION

REACTIONS (3)
  - ANAPHYLACTOID REACTION [None]
  - PHARYNGEAL OEDEMA [None]
  - SWELLING FACE [None]
